FAERS Safety Report 7622609-4 (Version None)
Quarter: 2011Q3

REPORT INFORMATION
  Report Type: 
  Country: None (occurrence: None)
  Receive Date: 20110701
  Receipt Date: 20100915
  Transmission Date: 20111222
  Serious: Yes (Other)
  Sender: FDA-Public Use
  Company Number: 7017801

PATIENT
  Age: 55 Year
  Sex: Male

DRUGS (3)
  1. DARVOCET (APOREX) [Concomitant]
  2. ADDERALL (OBETROL) [Concomitant]
  3. REBIF [Suspect]
     Indication: MULTIPLE SCLEROSIS
     Dosage: 44 MCG, 3 OM 1 WK, SUBCUTANEOUS
     Route: 058
     Dates: start: 20100617

REACTIONS (4)
  - INFLUENZA LIKE ILLNESS [None]
  - WHITE BLOOD CELL COUNT DECREASED [None]
  - DEPRESSED MOOD [None]
  - SUICIDAL IDEATION [None]
